FAERS Safety Report 7654500-1 (Version None)
Quarter: 2011Q3

REPORT INFORMATION
  Report Type: 
  Country: None (occurrence: None)
  Receive Date: 20110803
  Receipt Date: 20110726
  Transmission Date: 20111222
  Serious: Yes (Hospitalization, Other)
  Sender: FDA-Public Use
  Company Number: CA-ABBOTT-11P-028-0712905-00

PATIENT
  Sex: Male
  Weight: 120.31 kg

DRUGS (5)
  1. PURINETHOL [Suspect]
     Indication: CROHN'S DISEASE
     Route: 048
     Dates: end: 20110501
  2. PURINETHOL [Concomitant]
     Indication: PRODUCT USED FOR UNKNOWN INDICATION
  3. HUMIRA [Suspect]
     Route: 058
     Dates: start: 20110501, end: 20110501
  4. HUMIRA [Suspect]
     Indication: CROHN'S DISEASE
     Route: 058
     Dates: start: 20101001, end: 20110501
  5. HUMIRA [Suspect]
     Route: 058
     Dates: start: 20110501

REACTIONS (12)
  - FATIGUE [None]
  - IMPAIRED HEALING [None]
  - ANAL FISTULA [None]
  - ANAL HAEMORRHAGE [None]
  - PROCTALGIA [None]
  - ANAL ABSCESS [None]
  - RECTAL DISCHARGE [None]
  - ANAL FISSURE [None]
  - PURULENT DISCHARGE [None]
  - DRUG INEFFECTIVE [None]
  - CROHN'S DISEASE [None]
  - SKIN INDURATION [None]
